FAERS Safety Report 25098291 (Version 2)
Quarter: 2025Q3

REPORT INFORMATION
  Report Type: Report from Study
  Country: US (occurrence: US)
  Receive Date: 20250320
  Receipt Date: 20250828
  Transmission Date: 20251020
  Serious: No
  Sender: SANDOZ
  Company Number: US-SANDOZ-SDZ2025US016638

PATIENT
  Sex: Male

DRUGS (2)
  1. GLATOPA [Suspect]
     Active Substance: GLATIRAMER ACETATE
     Route: 058
  2. GLATOPA [Suspect]
     Active Substance: GLATIRAMER ACETATE
     Indication: Multiple sclerosis
     Route: 065

REACTIONS (4)
  - Injection site pain [Unknown]
  - Injection site haemorrhage [Unknown]
  - Circumstance or information capable of leading to medication error [Unknown]
  - Device defective [Unknown]
